FAERS Safety Report 11759057 (Version 1)
Quarter: 2015Q4

REPORT INFORMATION
  Report Type: Spontaneous
  Country: US (occurrence: None)
  Receive Date: 20151119
  Receipt Date: 20151119
  Transmission Date: 20160304
  Serious: Yes (Hospitalization, Other)
  Sender: FDA-Public Use
  Company Number: None

PATIENT
  Age: 65 Year
  Sex: Male
  Weight: 83.92 kg

DRUGS (12)
  1. ROPINIROLE. [Concomitant]
     Active Substance: ROPINIROLE
  2. TAMSULOSIN [Concomitant]
     Active Substance: TAMSULOSIN
  3. MUCINEX DM [Concomitant]
     Active Substance: DEXTROMETHORPHAN HYDROBROMIDE\GUAIFENESIN
  4. CARB/LEVO [Concomitant]
     Active Substance: CARBIDOPA\LEVODOPA
  5. RYTARY [Suspect]
     Active Substance: CARBIDOPA\LEVODOPA
     Indication: PARKINSON^S DISEASE
     Dosage: 3 PILLS
     Route: 048
     Dates: start: 20150310, end: 20150807
  6. GEMFIBROZIL. [Concomitant]
     Active Substance: GEMFIBROZIL
  7. DONEPEZIL. [Concomitant]
     Active Substance: DONEPEZIL
  8. COQ10 [Concomitant]
     Active Substance: UBIDECARENONE
  9. KRILL OIL [Concomitant]
     Active Substance: DIETARY SUPPLEMENT
  10. ALPHA LIPOIC ACID [Concomitant]
     Active Substance: .ALPHA.-LIPOIC ACID
  11. CLARITIN [Concomitant]
     Active Substance: LORATADINE
  12. L-CARNITINE [Concomitant]
     Active Substance: LEVOCARNITINE

REACTIONS (3)
  - Hallucination, visual [None]
  - Hallucination, auditory [None]
  - Confusional state [None]

NARRATIVE: CASE EVENT DATE: 20150623
